FAERS Safety Report 23863626 (Version 2)
Quarter: 2024Q2

REPORT INFORMATION
  Report Type: Report from Study
  Country: CA (occurrence: CA)
  Receive Date: 20240516
  Receipt Date: 20240614
  Transmission Date: 20240715
  Serious: Yes (Other)
  Sender: FDA-Public Use
  Company Number: CA-SAMSUNG BIOEPIS-SB-2024-14049

PATIENT
  Age: 41 Year
  Sex: Male

DRUGS (4)
  1. RENFLEXIS [Suspect]
     Active Substance: INFLIXIMAB-ABDA
     Indication: Crohn^s disease
     Dosage: 100 MG VIAL
     Route: 042
     Dates: start: 20230414
  2. SULFASALAZINE [Concomitant]
     Active Substance: SULFASALAZINE
     Indication: Product used for unknown indication
     Route: 048
  3. ADVIL [Concomitant]
     Active Substance: IBUPROFEN\IBUPROFEN SODIUM
     Indication: Pain
     Route: 065
  4. VENLAFAXINE [Concomitant]
     Active Substance: VENLAFAXINE HYDROCHLORIDE
     Indication: Product used for unknown indication
     Route: 065

REACTIONS (10)
  - Rectal haemorrhage [Not Recovered/Not Resolved]
  - Proctitis [Unknown]
  - Gastrointestinal oedema [Unknown]
  - Arthralgia [Recovered/Resolved]
  - Off label use [Unknown]
  - Malaise [Unknown]
  - Fistula [Unknown]
  - Quality of life decreased [Unknown]
  - Pain [Recovered/Resolved]
  - Fistula discharge [Recovered/Resolved]
